FAERS Safety Report 19448202 (Version 2)
Quarter: 2021Q3

REPORT INFORMATION
  Report Type: Spontaneous
  Country: JP (occurrence: JP)
  Receive Date: 20210622
  Receipt Date: 20210713
  Transmission Date: 20211014
  Serious: Yes (Other)
  Sender: FDA-Public Use
  Company Number: JP-TEVA-2021-JP-003005J

PATIENT
  Age: 71 Year
  Sex: Male
  Weight: 42 kg

DRUGS (10)
  1. POLAPREZINC [Concomitant]
     Active Substance: POLAPREZINC
     Route: 048
     Dates: start: 20210409, end: 20210601
  2. ALLOID G [Concomitant]
     Active Substance: SODIUM ALGINATE
     Route: 048
     Dates: start: 20210409, end: 20210601
  3. JANUVIA [Concomitant]
     Active Substance: SITAGLIPTIN PHOSPHATE
     Route: 048
     Dates: start: 20210511, end: 20210601
  4. ZONISAMIDE. [Concomitant]
     Active Substance: ZONISAMIDE
     Route: 048
     Dates: start: 20210408, end: 20210601
  5. MIGLITOL OD [Concomitant]
     Route: 048
     Dates: start: 20210408, end: 20210601
  6. TSUMURA HANGEKOBOKUTO EXTRACT GRANULES FOR ETHICAL USE [Concomitant]
     Route: 048
     Dates: start: 20210409, end: 20210601
  7. LANSOPRAZOLE OD TABLET 15MG ^TAKEDA TEVA^ [Suspect]
     Active Substance: LANSOPRAZOLE
     Indication: GASTROOESOPHAGEAL REFLUX DISEASE
     Dosage: 15 MILLIGRAM DAILY;
     Route: 048
     Dates: start: 20210428, end: 20210528
  8. LOXOPROFEN [Suspect]
     Active Substance: LOXOPROFEN
     Indication: RADIATION OESOPHAGITIS
     Dosage: 180 MILLIGRAM DAILY;
     Route: 048
     Dates: start: 20210512, end: 20210528
  9. CALONAL [Concomitant]
     Active Substance: ACETAMINOPHEN
     Route: 048
     Dates: start: 20210430, end: 20210601
  10. E KEPPRA [Concomitant]
     Active Substance: LEVETIRACETAM
     Route: 048
     Dates: start: 20210408, end: 20210601

REACTIONS (4)
  - Vomiting [Recovered/Resolved]
  - Abdominal discomfort [Recovering/Resolving]
  - Diarrhoea [Recovering/Resolving]
  - Pneumonia aspiration [Recovering/Resolving]

NARRATIVE: CASE EVENT DATE: 20210521
